FAERS Safety Report 23573955 (Version 1)
Quarter: 2024Q1

REPORT INFORMATION
  Report Type: Spontaneous
  Country: US (occurrence: US)
  Receive Date: 20240228
  Receipt Date: 20240228
  Transmission Date: 20240410
  Serious: No
  Sender: FDA-Public Use
  Company Number: US-GSK-US2024021393

PATIENT
  Age: 61 Year
  Sex: Male

DRUGS (3)
  1. LAMICTAL [Suspect]
     Active Substance: LAMOTRIGINE
     Indication: Bipolar disorder
     Dosage: UNK
  2. AMLODIPINE BESYLATE [Concomitant]
     Active Substance: AMLODIPINE BESYLATE
     Indication: Hypertension
     Dosage: UNK
  3. LEXAPRO [Concomitant]
     Active Substance: ESCITALOPRAM OXALATE
     Indication: Feeling of despair
     Dosage: UNK

REACTIONS (1)
  - Drug ineffective [Unknown]
